FAERS Safety Report 8228686-4 (Version None)
Quarter: 2012Q1

REPORT INFORMATION
  Report Type: 
  Country: None (occurrence: None)
  Receive Date: 20120322
  Receipt Date: 20120316
  Transmission Date: 20120608
  Serious: No
  Sender: FDA-Public Use
  Company Number: US-PFIZER INC-2012071217

PATIENT
  Sex: Female

DRUGS (1)
  1. LYRICA [Suspect]
     Dosage: 125 MG IN MORNING AND 25 MG AT NIGHT
     Route: 048

REACTIONS (2)
  - SOMNOLENCE [None]
  - EUPHORIC MOOD [None]
